FAERS Safety Report 11407226 (Version 1)
Quarter: 2015Q3

REPORT INFORMATION
  Report Type: Spontaneous
  Country: FR (occurrence: FR)
  Receive Date: 20150821
  Receipt Date: 20150821
  Transmission Date: 20151125
  Serious: Yes (Hospitalization)
  Sender: FDA-Public Use
  Company Number: PHHY2015FR100911

PATIENT
  Age: 60 Year
  Sex: Female

DRUGS (2)
  1. SANDIMMUN [Suspect]
     Active Substance: CYCLOSPORINE
     Indication: TRANSPLANT
     Dosage: 50 MG/ML, UNK
     Route: 042
     Dates: start: 20150414, end: 20150509
  2. NEORAL [Suspect]
     Active Substance: CYCLOSPORINE
     Indication: TRANSPLANT
     Dosage: UNK
     Route: 048
     Dates: start: 20150509, end: 20150518

REACTIONS (1)
  - Cerebellar syndrome [Recovered/Resolved]

NARRATIVE: CASE EVENT DATE: 20150518
